FAERS Safety Report 8576447-9 (Version None)
Quarter: 2012Q3

REPORT INFORMATION
  Report Type: 
  Country: None (occurrence: None)
  Receive Date: 20120725
  Receipt Date: 20120711
  Transmission Date: 20120928
  Serious: Yes (Other)
  Sender: FDA-Public Use
  Company Number: FK201201938

PATIENT
  Age: 28 Year
  Sex: Female
  Weight: 37 kg

DRUGS (14)
  1. ETHAMBUTOL HYDROCHLORIDE [Suspect]
     Indication: PULMONARY TUBERCULOSIS
     Dosage: 600 MG, ONCE DAILY
  2. ETHAMBUTOL HYDROCHLORIDE [Suspect]
     Indication: EXTRAPULMONARY TUBERCULOSIS
     Dosage: 600 MG, ONCE DAILY
  3. INH [Suspect]
     Indication: EXTRAPULMONARY TUBERCULOSIS
     Dosage: 300 MG, DAILY
  4. INH [Suspect]
     Indication: PULMONARY TUBERCULOSIS
     Dosage: 300 MG, DAILY
  5. PYRAZINAMIDE [Suspect]
     Indication: PULMONARY TUBERCULOSIS
     Dosage: 1200 MG, ONCE DAILY
  6. PYRAZINAMIDE [Suspect]
     Indication: EXTRAPULMONARY TUBERCULOSIS
     Dosage: 1200 MG, ONCE DAILY
  7. PREDNISOLONE [Concomitant]
  8. BLOOD TRANSFUSIONS (BLOOD TRANSFUSION, AUXILIARY PRODUCTS) [Concomitant]
  9. PYRIDOXINE HYDROCHLORIDE INJ [Suspect]
     Indication: EXTRAPULMONARY TUBERCULOSIS
     Dosage: 50 MG, ONCE DAILY
  10. PYRIDOXINE HYDROCHLORIDE INJ [Suspect]
     Indication: PULMONARY TUBERCULOSIS
     Dosage: 50 MG, ONCE DAILY
  11. MYCOPHENOLATE MOFETIL [Concomitant]
  12. TACROLIMUS [Concomitant]
  13. RIFAMPIN [Suspect]
     Indication: EXTRAPULMONARY TUBERCULOSIS
     Dosage: 300 MG, ONCE DAILY
  14. RIFAMPIN [Suspect]
     Indication: PULMONARY TUBERCULOSIS
     Dosage: 300 MG, ONCE DAILY

REACTIONS (3)
  - DRUG-INDUCED LIVER INJURY [None]
  - MICROCYTIC ANAEMIA [None]
  - BLOOD GLUCOSE INCREASED [None]
